FAERS Safety Report 10828730 (Version 2)
Quarter: 2016Q1

REPORT INFORMATION
  Report Type: Report from Study
  Country: PR (occurrence: PR)
  Receive Date: 20150219
  Receipt Date: 20160125
  Transmission Date: 20160525
  Serious: No
  Sender: FDA-Public Use
  Company Number: PR-ABBVIE-14P-131-1231419-00

PATIENT
  Sex: Female

DRUGS (10)
  1. PEPCID [Concomitant]
     Active Substance: FAMOTIDINE
     Indication: PRODUCT USED FOR UNKNOWN INDICATION
  2. HUMIRA [Suspect]
     Active Substance: ADALIMUMAB
     Indication: RHEUMATOID ARTHRITIS
     Route: 058
     Dates: start: 201403
  3. METHOTREXATE [Concomitant]
     Active Substance: METHOTREXATE
     Indication: PRODUCT USED FOR UNKNOWN INDICATION
  4. VITAMIN D [Concomitant]
     Active Substance: CHOLECALCIFEROL
     Indication: PRODUCT USED FOR UNKNOWN INDICATION
  5. MEDROL [Concomitant]
     Active Substance: METHYLPREDNISOLONE
     Indication: PRODUCT USED FOR UNKNOWN INDICATION
  6. PANADOL [Concomitant]
     Active Substance: ACETAMINOPHEN
     Indication: PRODUCT USED FOR UNKNOWN INDICATION
  7. PREDNISONE. [Concomitant]
     Active Substance: PREDNISONE
     Indication: PRODUCT USED FOR UNKNOWN INDICATION
  8. FOLIC ACID. [Concomitant]
     Active Substance: FOLIC ACID
     Indication: PRODUCT USED FOR UNKNOWN INDICATION
  9. CALCIUM [Concomitant]
     Active Substance: CALCIUM
     Indication: PRODUCT USED FOR UNKNOWN INDICATION
  10. ETODOLAC. [Concomitant]
     Active Substance: ETODOLAC
     Indication: PRODUCT USED FOR UNKNOWN INDICATION

REACTIONS (6)
  - Headache [Unknown]
  - Arthritis [Unknown]
  - Dizziness [Unknown]
  - Arthralgia [Unknown]
  - Drug ineffective [Unknown]
  - Drug dose omission [Not Recovered/Not Resolved]
